FAERS Safety Report 5682799-X (Version None)
Quarter: 2008Q1

REPORT INFORMATION
  Report Type: 
  Country: None (occurrence: None)
  Receive Date: 20080327
  Receipt Date: 20080319
  Transmission Date: 20080703
  Serious: Yes (Life-Threatening, Other)
  Sender: FDA-Public Use
  Company Number: JP-ASTRAZENECA-2008SE01561

PATIENT
  Sex: Male

DRUGS (4)
  1. BLOPRESS [Suspect]
     Indication: HYPERTENSION
     Route: 048
     Dates: end: 20070101
  2. TAKEPRON [Suspect]
     Indication: PEPTIC ULCER
     Route: 048
     Dates: end: 20070101
  3. TS 1 [Suspect]
     Route: 048
  4. GEMZAR [Suspect]
     Route: 042

REACTIONS (1)
  - INTERSTITIAL LUNG DISEASE [None]
